FAERS Safety Report 20631870 (Version 1)
Quarter: 2022Q1

REPORT INFORMATION
  Report Type: Spontaneous
  Country: US (occurrence: None)
  Receive Date: 20220323
  Receipt Date: 20220323
  Transmission Date: 20220424
  Serious: Yes (Other)
  Sender: FDA-Public Use
  Company Number: None

PATIENT
  Age: 64 Year
  Sex: Male
  Weight: 68.4 kg

DRUGS (2)
  1. AMIVANTAMAB [Suspect]
     Active Substance: AMIVANTAMAB
     Indication: Lung neoplasm malignant
     Dates: start: 20211207, end: 20220118
  2. AMIVANTAMAB [Concomitant]
     Active Substance: AMIVANTAMAB
     Dates: start: 20211207, end: 20220118

REACTIONS (2)
  - Rash [None]
  - Dermatitis bullous [None]

NARRATIVE: CASE EVENT DATE: 20211228
